FAERS Safety Report 5332760-X (Version None)
Quarter: 2007Q2

REPORT INFORMATION
  Report Type: 
  Country: None (occurrence: None)
  Receive Date: 20070523
  Receipt Date: 20070511
  Transmission Date: 20071010
  Serious: Yes (Hospitalization)
  Sender: FDA-Public Use
  Company Number: GB-PFIZER INC-2007039319

PATIENT
  Age: 45 Year
  Sex: Male
  Weight: 90 kg

DRUGS (4)
  1. CHAMPIX [Suspect]
     Route: 048
     Dates: start: 20070117, end: 20070410
  2. ALCOHOL [Suspect]
  3. RANITIDINE [Concomitant]
  4. CO-DYDRAMOL [Concomitant]

REACTIONS (1)
  - OVERDOSE [None]
